FAERS Safety Report 7018978-9 (Version None)
Quarter: 2010Q3

REPORT INFORMATION
  Report Type: 
  Country: None (occurrence: None)
  Receive Date: 20100928
  Receipt Date: 20100921
  Transmission Date: 20110219
  Serious: Yes (Death)
  Sender: FDA-Public Use
  Company Number: US-GILEAD-2010-0032052

PATIENT
  Sex: Male
  Weight: 72.186 kg

DRUGS (6)
  1. LETAIRIS [Suspect]
     Indication: PULMONARY ARTERIAL HYPERTENSION
     Route: 048
     Dates: start: 20100611, end: 20100909
  2. ATENOLOL [Concomitant]
  3. DIPYRIDAMOLE [Concomitant]
  4. ADALAT CC [Concomitant]
  5. PROAIR HFA [Concomitant]
  6. BROVANA [Concomitant]

REACTIONS (1)
  - DEATH [None]
